FAERS Safety Report 18650888 (Version 2)
Quarter: 2021Q1

REPORT INFORMATION
  Report Type: Spontaneous
  Country: US (occurrence: US)
  Receive Date: 20201223
  Receipt Date: 20210126
  Transmission Date: 20210419
  Serious: No
  Sender: FDA-Public Use
  Company Number: US-DRREDDYS-USA/USA/20/0130202

PATIENT

DRUGS (1)
  1. DAPTOMYCIN FOR INJECTION [Suspect]
     Active Substance: DAPTOMYCIN
     Indication: STAPHYLOCOCCAL INFECTION

REACTIONS (1)
  - Blood creatine phosphokinase increased [Recovering/Resolving]
